FAERS Safety Report 18429995 (Version 3)
Quarter: 2021Q1

REPORT INFORMATION
  Report Type: Report from Study
  Country: None (occurrence: US)
  Receive Date: 20201027
  Receipt Date: 20210111
  Transmission Date: 20210419
  Serious: Yes (Death, Hospitalization)
  Sender: FDA-Public Use
  Company Number: US-ABBVIE-20K-163-3620077-00

PATIENT
  Age: 73 Year
  Sex: Female
  Weight: 58.11 kg

DRUGS (8)
  1. PEPCID [Concomitant]
     Active Substance: FAMOTIDINE
     Indication: GASTRITIS
  2. LUTEIN [Concomitant]
     Active Substance: LUTEIN
     Indication: EYE DISORDER
  3. RINVOQ [Suspect]
     Active Substance: UPADACITINIB
     Indication: RHEUMATOID ARTHRITIS
     Route: 048
     Dates: start: 2019, end: 202010
  4. RINVOQ [Suspect]
     Active Substance: UPADACITINIB
     Route: 048
  5. TYLENOL [Concomitant]
     Active Substance: ACETAMINOPHEN
     Indication: MUSCULOSKELETAL DISCOMFORT
  6. LYRICA [Concomitant]
     Active Substance: PREGABALIN
     Indication: NEUROPATHY PERIPHERAL
  7. RINVOQ [Suspect]
     Active Substance: UPADACITINIB
     Route: 048
     Dates: start: 202011
  8. METOPROLOL. [Concomitant]
     Active Substance: METOPROLOL
     Indication: HYPERTENSION

REACTIONS (5)
  - Steroid therapy [Unknown]
  - Vision blurred [Not Recovered/Not Resolved]
  - Muscle rupture [Recovering/Resolving]
  - Gastritis [Recovered/Resolved]
  - Vomiting [Unknown]

NARRATIVE: CASE EVENT DATE: 20200104
